FAERS Safety Report 19226039 (Version 1)
Quarter: 2021Q2

REPORT INFORMATION
  Report Type: Spontaneous
  Country: US (occurrence: US)
  Receive Date: 20210505
  Receipt Date: 20210505
  Transmission Date: 20210717
  Serious: No
  Sender: FDA-Public Use
  Company Number: US-ROCHE-2682779

PATIENT
  Sex: Female

DRUGS (3)
  1. AVASTIN [Suspect]
     Active Substance: BEVACIZUMAB
     Indication: HYPOTHYROIDISM
  2. AVASTIN [Suspect]
     Active Substance: BEVACIZUMAB
     Indication: BRAIN NEOPLASM MALIGNANT
     Dosage: SERVICE DATE: 16/AUG/2018
     Route: 065
  3. HEPARIN SODIUM. [Concomitant]
     Active Substance: HEPARIN SODIUM

REACTIONS (3)
  - Intentional product use issue [Unknown]
  - No adverse event [Unknown]
  - Off label use [Unknown]
